FAERS Safety Report 6832240-6 (Version None)
Quarter: 2010Q3

REPORT INFORMATION
  Report Type: 
  Country: None (occurrence: None)
  Receive Date: 20100712
  Receipt Date: 20100705
  Transmission Date: 20110219
  Serious: Yes (Life-Threatening)
  Sender: FDA-Public Use
  Company Number: GB-TEVA-240685ISR

PATIENT
  Age: 26 Year
  Sex: Female
  Weight: 95 kg

DRUGS (1)
  1. AMOXICILLIN AND CLAVULANATE POTASSIUM [Suspect]
     Indication: PROPHYLAXIS
     Route: 042
     Dates: start: 20100528, end: 20100528

REACTIONS (3)
  - ERYTHEMA [None]
  - HYPOTENSION [None]
  - TACHYCARDIA [None]
